FAERS Safety Report 9462661 (Version 1)
Quarter: 2013Q3

REPORT INFORMATION
  Report Type: Spontaneous
  Country: US (occurrence: US)
  Receive Date: 20130816
  Receipt Date: 20130816
  Transmission Date: 20140515
  Serious: Yes (Hospitalization)
  Sender: FDA-Public Use
  Company Number: US-ELI_LILLY_AND_COMPANY-US201308002462

PATIENT
  Sex: Female

DRUGS (3)
  1. HUMALOG LISPRO [Suspect]
     Indication: DIABETES MELLITUS
  2. INSULIN HUMAN [Suspect]
     Indication: INSULIN RESISTANCE
     Dosage: UNK
     Route: 058
  3. INSULIN HUMAN [Suspect]
     Indication: DIABETES MELLITUS

REACTIONS (5)
  - Abscess [Unknown]
  - Dry skin [Unknown]
  - Off label use [Unknown]
  - Blood glucose decreased [Unknown]
  - Blood glucose decreased [Unknown]
